FAERS Safety Report 13625918 (Version 1)
Quarter: 2017Q2

REPORT INFORMATION
  Report Type: Spontaneous
  Country: DE (occurrence: DE)
  Receive Date: 20170607
  Receipt Date: 20170607
  Transmission Date: 20170830
  Serious: Yes (Other)
  Sender: FDA-Public Use
  Company Number: DE-MYLANLABS-2017M1033300

PATIENT

DRUGS (11)
  1. SPIROBETA [Concomitant]
     Active Substance: SPIRONOLACTONE
     Dosage: SEIT JAHREN
     Route: 048
  2. MIRTAZAPINE. [Suspect]
     Active Substance: MIRTAZAPINE
     Dosage: 15 MG, QD
     Route: 048
     Dates: start: 20160921, end: 20160922
  3. TIMONIL [Interacting]
     Active Substance: CARBAMAZEPINE
     Dosage: 300 MG, QD
     Route: 048
     Dates: start: 20161004
  4. AMLODIPIN [Concomitant]
     Active Substance: AMLODIPINE BESYLATE
     Dosage: 10 MG, QD
     Route: 048
     Dates: start: 20161007
  5. MIRTAZAPINE. [Suspect]
     Active Substance: MIRTAZAPINE
     Dosage: 15 MG, QD
     Route: 048
     Dates: start: 20160924
  6. TIMONIL [Interacting]
     Active Substance: CARBAMAZEPINE
     Dosage: SEIT JAHREN
     Route: 048
     Dates: end: 20160928
  7. AMLODIPIN [Concomitant]
     Active Substance: AMLODIPINE BESYLATE
     Dosage: SEIT JAHREN
     Route: 048
     Dates: end: 20161006
  8. CANDESARTAN. [Concomitant]
     Active Substance: CANDESARTAN
     Dosage: SEIT JAHREN
     Route: 048
  9. TIMONIL [Interacting]
     Active Substance: CARBAMAZEPINE
     Dosage: 400 MG, QD
     Route: 048
     Dates: start: 20160929, end: 20161003
  10. HCT [Concomitant]
     Active Substance: HYDROCHLOROTHIAZIDE
     Dosage: SEIT JAHREN
     Route: 048
  11. MIRTAZAPINE. [Suspect]
     Active Substance: MIRTAZAPINE
     Dosage: 30 MG, QD
     Route: 048
     Dates: start: 20160923

REACTIONS (1)
  - Restless legs syndrome [Recovered/Resolved]

NARRATIVE: CASE EVENT DATE: 20161010
